FAERS Safety Report 4498319-1 (Version None)
Quarter: 2004Q4

REPORT INFORMATION
  Report Type: 
  Country: None (occurrence: None)
  Receive Date: 20041109
  Receipt Date: 20041109
  Transmission Date: 20050328
  Serious: Yes (Hospitalization)
  Sender: FDA-Public Use
  Company Number: None

PATIENT
  Age: 60 Year
  Sex: Female

DRUGS (3)
  1. ENBREL [Suspect]
     Indication: RHEUMATOID ARTHRITIS
     Dosage: 25MG SUB Q BIW
     Route: 058
     Dates: start: 20030101, end: 20040901
  2. METHOTREXATE [Concomitant]
  3. FOLIC ACID [Concomitant]

REACTIONS (3)
  - MASS [None]
  - MYCOBACTERIAL INFECTION [None]
  - SOFT TISSUE DISORDER [None]
